FAERS Safety Report 6613610-8 (Version None)
Quarter: 2010Q1

REPORT INFORMATION
  Report Type: 
  Country: None (occurrence: None)
  Receive Date: 20100224
  Receipt Date: 20090403
  Transmission Date: 20100710
  Serious: Yes (Other)
  Sender: FDA-Public Use
  Company Number: WAES 0904USA00580

PATIENT

DRUGS (2)
  1. ZOCOR [Suspect]
     Dosage: PO
     Route: 048
  2. BIAXIN [Suspect]

REACTIONS (1)
  - RHABDOMYOLYSIS [None]
